FAERS Safety Report 13831045 (Version 2)
Quarter: 2017Q4

REPORT INFORMATION
  Report Type: Spontaneous
  Country: MA (occurrence: MA)
  Receive Date: 20170803
  Receipt Date: 20171114
  Transmission Date: 20180320
  Serious: Yes (Hospitalization, Other)
  Sender: FDA-Public Use
  Company Number: MA-SUN PHARMACEUTICAL INDUSTRIES LTD-2017R5-146822

PATIENT
  Age: 41 Year
  Sex: Female

DRUGS (1)
  1. DOCETAXEL SUN [Suspect]
     Active Substance: DOCETAXEL
     Indication: PRODUCT USED FOR UNKNOWN INDICATION
     Dosage: UNK
     Route: 042

REACTIONS (7)
  - Vomiting [Recovering/Resolving]
  - Drug administration error [Unknown]
  - Tachycardia [Recovering/Resolving]
  - Anaphylactic reaction [Recovering/Resolving]
  - Product deposit [Unknown]
  - Product storage error [Unknown]
  - Chills [Recovering/Resolving]
